FAERS Safety Report 13625955 (Version 1)
Quarter: 2017Q2

REPORT INFORMATION
  Report Type: Spontaneous
  Country: US (occurrence: US)
  Receive Date: 20170531
  Receipt Date: 20170531
  Transmission Date: 20170830
  Serious: Yes (Other)
  Sender: FDA-Public Use
  Company Number: US-ASTELLAS-1079861

PATIENT
  Age: 53 Year
  Sex: Male
  Weight: 87.17 kg

DRUGS (4)
  1. RAPAMUNE [Concomitant]
     Active Substance: SIROLIMUS
     Indication: GLIOBLASTOMA MULTIFORME
     Route: 048
     Dates: start: 20120430
  2. AVASTIN [Concomitant]
     Active Substance: BEVACIZUMAB
     Indication: GLIOBLASTOMA MULTIFORME
     Route: 042
     Dates: start: 20120420
  3. TARCEVA [Suspect]
     Active Substance: ERLOTINIB HYDROCHLORIDE
     Indication: GLIOBLASTOMA MULTIFORME
     Route: 048
     Dates: start: 20120420
  4. TEMODAR [Concomitant]
     Active Substance: TEMOZOLOMIDE
     Route: 048
     Dates: start: 20120423

REACTIONS (1)
  - Rash [Recovered/Resolved]

NARRATIVE: CASE EVENT DATE: 20120509
